FAERS Safety Report 4342672-6 (Version None)
Quarter: 2004Q1

REPORT INFORMATION
  Report Type: 
  Country: None (occurrence: None)
  Receive Date: 20040213
  Receipt Date: 20031111
  Transmission Date: 20041129
  Serious: No
  Sender: FDA-Public Use
  Company Number: 351619

PATIENT
  Sex: Female

DRUGS (2)
  1. PEGASYS [Suspect]
     Dosage: 180 ML, SUBCUTANEOUS
     Route: 058
     Dates: start: 20030917
  2. COPEGUS [Concomitant]

REACTIONS (1)
  - NEUTROPENIA [None]
